FAERS Safety Report 5849827-X (Version None)
Quarter: 2008Q3

REPORT INFORMATION
  Report Type: 
  Country: None (occurrence: None)
  Receive Date: 20080819
  Receipt Date: 20080815
  Transmission Date: 20090109
  Serious: Yes (Hospitalization)
  Sender: FDA-Public Use
  Company Number: FR-ABBOTT-08P-056-0469434-00

PATIENT
  Sex: Male

DRUGS (11)
  1. DEPAKOTE [Suspect]
     Indication: DRUG USE FOR UNKNOWN INDICATION
     Route: 048
     Dates: start: 20080613, end: 20080619
  2. DEPAKOTE [Suspect]
     Route: 048
     Dates: start: 20080620, end: 20080628
  3. LOXAPINE [Suspect]
     Indication: AGITATION
     Route: 048
     Dates: start: 20080606, end: 20080608
  4. LOXAPINE [Suspect]
     Indication: AGGRESSION
     Route: 048
     Dates: start: 20080609, end: 20080611
  5. LOXAPINE [Suspect]
     Route: 048
     Dates: start: 20080612, end: 20080619
  6. CLOPIDOGREL [Concomitant]
     Indication: DRUG USE FOR UNKNOWN INDICATION
     Route: 048
  7. ACETYLSALICYLATE LYSINE [Concomitant]
     Indication: DRUG USE FOR UNKNOWN INDICATION
     Route: 048
  8. INSULIN [Concomitant]
     Indication: DRUG USE FOR UNKNOWN INDICATION
  9. AZATHIOPRINE [Concomitant]
     Indication: DRUG USE FOR UNKNOWN INDICATION
     Route: 065
  10. TACROLIMUS [Concomitant]
     Indication: DRUG USE FOR UNKNOWN INDICATION
     Route: 065
  11. SOTALOL HCL [Concomitant]
     Indication: DRUG USE FOR UNKNOWN INDICATION
     Route: 065

REACTIONS (4)
  - AKATHISIA [None]
  - DRY MOUTH [None]
  - DYSKINESIA [None]
  - DYSTONIA [None]
